FAERS Safety Report 16157286 (Version 2)
Quarter: 2019Q2

REPORT INFORMATION
  Report Type: Spontaneous
  Country: US (occurrence: US)
  Receive Date: 20190404
  Receipt Date: 20190529
  Transmission Date: 20190711
  Serious: No
  Sender: FDA-Public Use
  Company Number: US-PFIZER INC-2019132049

PATIENT
  Age: 73 Year
  Sex: Female

DRUGS (2)
  1. LYRICA [Suspect]
     Active Substance: PREGABALIN
     Dosage: 300 MG, 2X/DAY (2 CAPSULES IN THE MORNING AND 2 CAPSULES AT NIGHT )
     Route: 048
  2. COUMADIN [Concomitant]
     Active Substance: WARFARIN SODIUM
     Indication: THROMBOSIS
     Dosage: UNK, DAILY
     Dates: start: 1996

REACTIONS (4)
  - Balance disorder [Unknown]
  - Oxygen saturation decreased [Not Recovered/Not Resolved]
  - Fall [Unknown]
  - Intentional product misuse [Unknown]
